FAERS Safety Report 15937334 (Version 1)
Quarter: 2019Q1

REPORT INFORMATION
  Report Type: Spontaneous
  Country: US (occurrence: US)
  Receive Date: 20190116
  Receipt Date: 20190116
  Transmission Date: 20190417
  Serious: Yes (Hospitalization)
  Sender: FDA-Public Use
  Company Number: None

PATIENT
  Age: 50 Year
  Weight: 74.7 kg

DRUGS (2)
  1. AURANOFIN 6MG [Suspect]
     Active Substance: AURANOFIN
     Indication: OVARIAN CANCER
     Route: 048
     Dates: start: 20181228, end: 20190114
  2. SIROLIMUS 5MG [Suspect]
     Active Substance: SIROLIMUS
     Indication: OVARIAN CANCER
     Route: 048
     Dates: start: 20181228, end: 20190114

REACTIONS (8)
  - Productive cough [None]
  - Tachycardia [None]
  - Pneumonia aspiration [None]
  - Retching [None]
  - Vomiting [None]
  - Dyspnoea [None]
  - Pyrexia [None]
  - Nausea [None]

NARRATIVE: CASE EVENT DATE: 20190115
